FAERS Safety Report 6989756-1 (Version None)
Quarter: 2010Q3

REPORT INFORMATION
  Report Type: 
  Country: None (occurrence: None)
  Receive Date: 20100916
  Receipt Date: 20100223
  Transmission Date: 20110219
  Serious: Yes (Other)
  Sender: FDA-Public Use
  Company Number: US-PFIZER INC-2010024366

PATIENT
  Sex: Male
  Weight: 79.365 kg

DRUGS (3)
  1. LYRICA [Suspect]
     Indication: TRIGEMINAL NEURALGIA
     Dosage: 100 MG, 3X/DAY
     Route: 048
     Dates: start: 20060101
  2. LYRICA [Suspect]
     Indication: NEUROPATHY PERIPHERAL
  3. LYRICA [Suspect]
     Indication: NERVE INJURY

REACTIONS (3)
  - BLOOD GLUCOSE INCREASED [None]
  - DRUG DEPENDENCE [None]
  - VISUAL ACUITY REDUCED [None]
